FAERS Safety Report 4724283-3 (Version None)
Quarter: 2005Q3

REPORT INFORMATION
  Report Type: 
  Country: None (occurrence: None)
  Receive Date: 20050726
  Receipt Date: 20050726
  Transmission Date: 20060218
  Serious: Yes (Hospitalization, Disabling, Other)
  Sender: FDA-Public Use
  Company Number: None

PATIENT
  Age: 32 Year
  Sex: Female
  Weight: 95.2554 kg

DRUGS (1)
  1. RU-486 [Suspect]
     Indication: UNINTENDED PREGNANCY
     Dosage: ONE PILL AT OFFICE ORAL TWO PILLS AT HOME ORAL
     Route: 048
     Dates: start: 20040801, end: 20040815

REACTIONS (6)
  - HAEMORRHAGE [None]
  - INFECTION [None]
  - MALAISE [None]
  - PAIN [None]
  - UTERINE DILATION AND CURETTAGE [None]
  - WEIGHT DECREASED [None]
